FAERS Safety Report 16368294 (Version 1)
Quarter: 2019Q2

REPORT INFORMATION
  Report Type: Spontaneous
  Country: NL (occurrence: NL)
  Receive Date: 20190529
  Receipt Date: 20190529
  Transmission Date: 20190711
  Serious: Yes (Other)
  Sender: FDA-Public Use
  Company Number: NL-TEVA-2019-NL-1056043

PATIENT
  Age: 18 Year
  Sex: Female

DRUGS (3)
  1. OXCARBAZEPIN 300 MG [Concomitant]
  2. FLUTICASON NEUSSPRAY, 50 ?G/DOSIS (MICROGRAM PER DOSIS) [Suspect]
     Active Substance: FLUTICASONE PROPIONATE
     Indication: NASOPHARYNGITIS
     Dosage: 1 X PER DAY 2 INHALATIONS IN BOTH NOSTRILS
     Dates: start: 20180830, end: 20180921
  3. DESLORATADINE 5 MG [Concomitant]

REACTIONS (1)
  - Epilepsy [Recovered/Resolved]
